FAERS Safety Report 4276478-3 (Version None)
Quarter: 2004Q1

REPORT INFORMATION
  Report Type: 
  Country: None (occurrence: None)
  Receive Date: 20040120
  Receipt Date: 20040107
  Transmission Date: 20041129
  Serious: Yes (Hospitalization, Other)
  Sender: FDA-Public Use
  Company Number: 2004001295

PATIENT
  Sex: Female
  Weight: 113.3993 kg

DRUGS (9)
  1. NARDIL [Suspect]
     Indication: DEPRESSION
     Dosage: 60 MG (QID), ORAL
     Route: 048
  2. NSAID'S [Suspect]
     Indication: ARTHRALGIA
     Dosage: ORAL
     Route: 048
     Dates: start: 20020101, end: 20020101
  3. LOTREL (AMLODIPINE, BENAZEPRIL HYDROCHLORIDE) [Concomitant]
  4. CLONAZEPAM [Concomitant]
  5. PIOGLITAZONE HCL [Concomitant]
  6. ACETYLSALICYLIC ACID SRT [Concomitant]
  7. HYDROCHLOROTHIAZIDE [Concomitant]
  8. LEVOTHYROXINE SODIUM [Concomitant]
  9. CENTRUM SILVER (ASCORBIC ACID, TOCOPHERYL ACETATE, RETINOL, ZINC, CALC [Concomitant]

REACTIONS (10)
  - ARTHRALGIA [None]
  - BREAST CANCER [None]
  - CRYING [None]
  - DELUSION [None]
  - FEELING ABNORMAL [None]
  - FEELING HOT [None]
  - IRRITABILITY [None]
  - NERVOUSNESS [None]
  - PARAESTHESIA [None]
  - STOMACH DISCOMFORT [None]
